FAERS Safety Report 5074684-1 (Version None)
Quarter: 2006Q3

REPORT INFORMATION
  Report Type: 
  Country: None (occurrence: None)
  Receive Date: 20060803
  Receipt Date: 20060719
  Transmission Date: 20061208
  Serious: Yes (Other)
  Sender: FDA-Public Use
  Company Number: US200605004100

PATIENT
  Age: 46 Year
  Sex: Female

DRUGS (7)
  1. CYMBALTA [Suspect]
     Indication: PAIN
     Dosage: 120 MG
     Dates: start: 20050101
  2. EVISTA [Suspect]
  3. PREVACID [Concomitant]
  4. PREMARIN [Concomitant]
  5. PERCOCET [Concomitant]
  6. VALIUM /NET/(DIAZEPAM) [Concomitant]
  7. ANALGESICS [Concomitant]

REACTIONS (8)
  - ASTHENIA [None]
  - BLOOD DISORDER [None]
  - CHRONIC LYMPHOCYTIC LEUKAEMIA [None]
  - DIZZINESS [None]
  - HYPERHIDROSIS [None]
  - INFECTION [None]
  - MALAISE [None]
  - VOMITING [None]
